FAERS Safety Report 16863956 (Version 1)
Quarter: 2019Q3

REPORT INFORMATION
  Report Type: Report from Study
  Country: JP (occurrence: JP)
  Receive Date: 20190927
  Receipt Date: 20190927
  Transmission Date: 20191005
  Serious: Yes (Life-Threatening, Hospitalization)
  Sender: FDA-Public Use
  Company Number: JP-BIOCODEX SA-201901208

PATIENT
  Age: 27 Year
  Sex: Male

DRUGS (39)
  1. DIACOMIT [Suspect]
     Active Substance: STIRIPENTOL
     Dosage: 1500 MG, QD
     Route: 048
     Dates: start: 20150603, end: 20151117
  2. MIDAZOLAM [Concomitant]
     Active Substance: MIDAZOLAM HYDROCHLORIDE
     Dosage: 0.375 MG/KG/H (SUBSEQUENT GRADUAL DOSE REDUCTION)
     Route: 051
     Dates: start: 20160220, end: 20160224
  3. MIDAZOLAM [Concomitant]
     Active Substance: MIDAZOLAM HYDROCHLORIDE
     Dosage: 0.05 MG/KG/H
     Route: 051
     Dates: start: 20170217, end: 20170222
  4. SODIUM VALPROATE [Suspect]
     Active Substance: VALPROATE SODIUM
     Dosage: 600 MG, QD
     Route: 048
     Dates: start: 20160510, end: 20170116
  5. SODIUM VALPROATE [Suspect]
     Active Substance: VALPROATE SODIUM
     Dosage: 550 MG, QD
     Route: 048
     Dates: start: 20170117
  6. MIDAZOLAM [Concomitant]
     Active Substance: MIDAZOLAM HYDROCHLORIDE
     Indication: SEVERE MYOCLONIC EPILEPSY OF INFANCY
     Dosage: 0.06 MG/KG/H
     Route: 051
     Dates: start: 20150513, end: 20150520
  7. MIDAZOLAM [Concomitant]
     Active Substance: MIDAZOLAM HYDROCHLORIDE
     Dosage: 0.05 MG/KG/H
     Route: 051
     Dates: start: 20160613, end: 20160615
  8. PERAMIVIR HYDRATE [Concomitant]
     Indication: PRODUCT USED FOR UNKNOWN INDICATION
     Route: 051
     Dates: start: 20180204
  9. DIACOMIT [Suspect]
     Active Substance: STIRIPENTOL
     Dosage: 1000 MG, QD
     Route: 048
     Dates: start: 20150527, end: 20150602
  10. DIACOMIT [Suspect]
     Active Substance: STIRIPENTOL
     Dosage: 1750 MG, QD
     Route: 048
     Dates: start: 20151118, end: 20160314
  11. MYSTAN [Suspect]
     Active Substance: CLOBAZAM
     Dosage: 15 MG, QD
     Route: 048
     Dates: start: 20161122, end: 20170703
  12. CORTRIL [Suspect]
     Active Substance: HYDROCORTISONE
     Dosage: 30 MG, QD
     Route: 048
     Dates: start: 20160315
  13. MIDAZOLAM [Concomitant]
     Active Substance: MIDAZOLAM HYDROCHLORIDE
     Dosage: 0.05 MG/KG/H
     Route: 051
     Dates: start: 20170314, end: 20170318
  14. MIDAZOLAM [Concomitant]
     Active Substance: MIDAZOLAM HYDROCHLORIDE
     Dosage: 0.05 MG/KG/H
     Route: 051
     Dates: start: 20170418, end: 20170419
  15. TOPIRAMATE. [Concomitant]
     Active Substance: TOPIRAMATE
     Dosage: 50 MG, QD
     Route: 048
     Dates: start: 20170317
  16. DIACOMIT [Suspect]
     Active Substance: STIRIPENTOL
     Indication: SEVERE MYOCLONIC EPILEPSY OF INFANCY
     Dosage: 500 MG, QD
     Route: 048
     Dates: start: 20150521, end: 20150526
  17. DIACOMIT [Suspect]
     Active Substance: STIRIPENTOL
     Dosage: 1750 MG, QD
     Route: 048
     Dates: start: 20170523, end: 20171002
  18. MIDAZOLAM [Concomitant]
     Active Substance: MIDAZOLAM HYDROCHLORIDE
     Dosage: 0.05 MG/KG/H
     Route: 051
     Dates: start: 20161116, end: 20161121
  19. SODIUM VALPROATE [Suspect]
     Active Substance: VALPROATE SODIUM
     Indication: SEVERE MYOCLONIC EPILEPSY OF INFANCY
     Dosage: 1000 MG, QD
     Route: 048
     Dates: end: 20150608
  20. MIDAZOLAM [Concomitant]
     Active Substance: MIDAZOLAM HYDROCHLORIDE
     Dosage: 0.06 MG/KG/H
     Route: 051
     Dates: start: 20151013, end: 20151014
  21. CEFOTAXIME SODIUM [Concomitant]
     Active Substance: CEFOTAXIME SODIUM
     Indication: PRODUCT USED FOR UNKNOWN INDICATION
     Dosage: 6 G, QD
     Route: 051
     Dates: start: 20180204, end: 20180213
  22. SODIUM VALPROATE [Suspect]
     Active Substance: VALPROATE SODIUM
     Dosage: 600 MG, QD
     Route: 048
     Dates: start: 20150615, end: 20151006
  23. MIDAZOLAM [Concomitant]
     Active Substance: MIDAZOLAM HYDROCHLORIDE
     Dosage: 0.05 MG/KG/H
     Route: 051
     Dates: start: 20160503, end: 20160505
  24. MIDAZOLAM [Concomitant]
     Active Substance: MIDAZOLAM HYDROCHLORIDE
     Dosage: 0.05 MG/KG/H
     Route: 051
     Dates: start: 20160822, end: 20160920
  25. MIDAZOLAM [Concomitant]
     Active Substance: MIDAZOLAM HYDROCHLORIDE
     Dosage: 0.05 MG/KG/H
     Route: 051
     Dates: start: 20170429, end: 20170502
  26. TOPIRAMATE. [Concomitant]
     Active Substance: TOPIRAMATE
     Indication: SEVERE MYOCLONIC EPILEPSY OF INFANCY
     Dosage: 100 MG, QD
     Route: 048
     Dates: start: 2015, end: 20150513
  27. DIACOMIT [Suspect]
     Active Substance: STIRIPENTOL
     Dosage: 1500 MG, QD
     Route: 048
     Dates: start: 20171003
  28. SODIUM VALPROATE [Suspect]
     Active Substance: VALPROATE SODIUM
     Dosage: 800 MG, QD
     Route: 048
     Dates: start: 20150609, end: 20150614
  29. SODIUM VALPROATE [Suspect]
     Active Substance: VALPROATE SODIUM
     Dosage: 700 MG, QD
     Route: 048
     Dates: start: 20151027, end: 20160509
  30. MYSTAN [Suspect]
     Active Substance: CLOBAZAM
     Indication: SEVERE MYOCLONIC EPILEPSY OF INFANCY
     Dosage: 15 MG, QD
     Route: 048
     Dates: end: 20150509
  31. MYSTAN [Suspect]
     Active Substance: CLOBAZAM
     Dosage: 20 MG, QD
     Route: 048
     Dates: start: 20150510, end: 20161121
  32. MYSTAN [Suspect]
     Active Substance: CLOBAZAM
     Dosage: 12 MG, QD
     Route: 048
     Dates: start: 20170704
  33. CORTRIL [Suspect]
     Active Substance: HYDROCORTISONE
     Indication: PRODUCT USED FOR UNKNOWN INDICATION
     Dosage: 100 MG, QD
     Route: 048
     Dates: start: 20151021, end: 20151028
  34. MIDAZOLAM [Concomitant]
     Active Substance: MIDAZOLAM HYDROCHLORIDE
     Dosage: 0.05 MG/KG/H
     Route: 051
     Dates: start: 20170209, end: 20170212
  35. DIACOMIT [Suspect]
     Active Substance: STIRIPENTOL
     Dosage: 2000 MG, QD
     Route: 048
     Dates: start: 20160315, end: 20170522
  36. SODIUM VALPROATE [Suspect]
     Active Substance: VALPROATE SODIUM
     Dosage: 500 MG, QD
     Route: 048
     Dates: start: 20151007, end: 20151026
  37. CORTRIL [Suspect]
     Active Substance: HYDROCORTISONE
     Dosage: 50 MG, QD
     Route: 048
     Dates: start: 20151029, end: 20160314
  38. MIDAZOLAM [Concomitant]
     Active Substance: MIDAZOLAM HYDROCHLORIDE
     Dosage: 0.14 MG/KG/H
     Route: 051
     Dates: start: 20180204, end: 20180208
  39. MIDAZOLAM [Concomitant]
     Active Substance: MIDAZOLAM HYDROCHLORIDE
     Dosage: 0.14 MG/KG/H
     Route: 051
     Dates: start: 20180410, end: 20180412

REACTIONS (1)
  - Pneumonia aspiration [Recovered/Resolved]

NARRATIVE: CASE EVENT DATE: 20180204
